FAERS Safety Report 15857951 (Version 3)
Quarter: 2019Q1

REPORT INFORMATION
  Report Type: Spontaneous
  Country: JP (occurrence: JP)
  Receive Date: 20190123
  Receipt Date: 20190312
  Transmission Date: 20190417
  Serious: Yes (Hospitalization, Other)
  Sender: FDA-Public Use
  Company Number: JP-ASTRAZENECA-2019SE09102

PATIENT
  Age: 27276 Day
  Sex: Female
  Weight: 46 kg

DRUGS (1)
  1. TAGRISSO [Suspect]
     Active Substance: OSIMERTINIB
     Indication: NON-SMALL CELL LUNG CANCER
     Route: 048
     Dates: start: 20181011, end: 20181219

REACTIONS (8)
  - Acute respiratory failure [Recovered/Resolved]
  - Metastases to lung [Unknown]
  - Acute respiratory distress syndrome [Unknown]
  - Malignant neoplasm progression [Unknown]
  - Infection [Unknown]
  - Pulmonary oedema [Unknown]
  - Interstitial lung disease [Recovering/Resolving]
  - Pleural neoplasm [Unknown]

NARRATIVE: CASE EVENT DATE: 20181219
